FAERS Safety Report 18250921 (Version 1)
Quarter: 2020Q3

REPORT INFORMATION
  Report Type: Spontaneous
  Country: US (occurrence: US)
  Receive Date: 20200909
  Receipt Date: 20200909
  Transmission Date: 20201103
  Serious: Yes (Hospitalization, Disabling, Other)
  Sender: FDA-Public Use
  Company Number: US-NOVOPROD-750429

PATIENT
  Age: 46 Year
  Sex: Female

DRUGS (2)
  1. LANTUS [Concomitant]
     Active Substance: INSULIN GLARGINE
     Indication: TYPE 1 DIABETES MELLITUS
     Dosage: UNK
     Route: 065
  2. NOVOLOG [Suspect]
     Active Substance: INSULIN ASPART
     Indication: TYPE 1 DIABETES MELLITUS
     Route: 058
     Dates: end: 20200815

REACTIONS (9)
  - Arteriovenous fistula operation [Unknown]
  - Impaired gastric emptying [Unknown]
  - Diabetic autonomic neuropathy [Unknown]
  - Arteriovenous fistula site complication [Unknown]
  - Diabetic ketoacidosis [Unknown]
  - Blindness [Not Recovered/Not Resolved]
  - Urinary tract infection [Unknown]
  - Peritoneal dialysis [Not Recovered/Not Resolved]
  - Diabetic neuropathy [Unknown]

NARRATIVE: CASE EVENT DATE: 20200731
